FAERS Safety Report 13788166 (Version 1)
Quarter: 2017Q3

REPORT INFORMATION
  Report Type: Spontaneous
  Country: US (occurrence: US)
  Receive Date: 20170725
  Receipt Date: 20170725
  Transmission Date: 20171127
  Serious: No
  Sender: FDA-Public Use
  Company Number: US-UNITED THERAPEUTICS-UNT-2017-002423

PATIENT
  Age: 5 Month
  Sex: Male
  Weight: 6.8 kg

DRUGS (2)
  1. REVATIO [Concomitant]
     Active Substance: SILDENAFIL CITRATE
     Indication: PRODUCT USED FOR UNKNOWN INDICATION
  2. REMODULIN [Suspect]
     Active Substance: TREPROSTINIL
     Indication: PULMONARY ARTERIAL HYPERTENSION
     Dosage: 0.0249 ?G/KG, CONTINUING
     Route: 058
     Dates: start: 20161216

REACTIONS (6)
  - Infusion site erythema [Unknown]
  - Dermatitis contact [Unknown]
  - Device adhesion issue [Unknown]
  - Infusion site extravasation [Not Recovered/Not Resolved]
  - Device use issue [Unknown]
  - Irritability [Unknown]

NARRATIVE: CASE EVENT DATE: 201702
